FAERS Safety Report 17911147 (Version 2)
Quarter: 2020Q2

REPORT INFORMATION
  Report Type: Spontaneous
  Country: US (occurrence: US)
  Receive Date: 20200618
  Receipt Date: 20200619
  Transmission Date: 20200714
  Serious: Yes (Other)
  Sender: FDA-Public Use
  Company Number: US-CELLTRION INC.-2020US023289

PATIENT

DRUGS (6)
  1. ADALIMUMAB [Suspect]
     Active Substance: ADALIMUMAB
     Indication: ANKYLOSING SPONDYLITIS
     Dosage: CUMULATIVE TOTAL OF 2 YEARS
  2. ETANERCEPT [Suspect]
     Active Substance: ETANERCEPT
     Indication: ANKYLOSING SPONDYLITIS
     Dosage: CUMULATIVE TOTAL OF 2 YEARS
  3. ADALIMUMAB [Suspect]
     Active Substance: ADALIMUMAB
     Indication: TYPE 1 DIABETES MELLITUS
  4. INFLIXIMAB (UNKNOWN) [Suspect]
     Active Substance: INFLIXIMAB
     Indication: ANKYLOSING SPONDYLITIS
     Dosage: TWICE; CUMULATIVE TOTAL OF 2 YEARS
  5. INFLIXIMAB (UNKNOWN) [Suspect]
     Active Substance: INFLIXIMAB
     Indication: TYPE 1 DIABETES MELLITUS
  6. ETANERCEPT [Suspect]
     Active Substance: ETANERCEPT
     Indication: TYPE 1 DIABETES MELLITUS

REACTIONS (2)
  - Encephalitis autoimmune [Unknown]
  - Off label use [Unknown]
